FAERS Safety Report 8481788 (Version 3)
Quarter: 2012Q4

REPORT INFORMATION
  Report Type: 
  Country: JP (occurrence: JP)
  Receive Date: 20120329
  Receipt Date: 20121221
  Transmission Date: 20130627
  Serious: Yes (Other)
  Sender: FDA-Public Use
  Company Number: JP-PFIZER INC-2012077627

PATIENT
  Age: 61 Year
  Sex: Female
  Weight: 46 kg

DRUGS (10)
  1. LYRICA [Suspect]
     Indication: NEURALGIA
     Dosage: 25 mg, 3x/day
     Route: 048
     Dates: start: 20120312, end: 20120326
  2. MEXITIL [Concomitant]
     Indication: NEURALGIA
     Dosage: 50 mg, 3x/day
     Route: 048
     Dates: start: 20120312
  3. PREDONINE [Concomitant]
     Indication: ADRENAL INSUFFICIENCY
     Dosage: 5 mg, 1x/day
     Route: 048
     Dates: start: 2008
  4. ZANTAC [Concomitant]
     Indication: GASTRIC ULCER PROPHYLAXIS
     Dosage: 75 mg, 1x/day
     Route: 048
     Dates: start: 2008
  5. LEVOCARNITINE [Concomitant]
     Indication: CARNITINE DEFICIENCY
     Dosage: 300 mg, 1x/day
     Route: 048
     Dates: start: 20120112
  6. EPLERENONE [Concomitant]
     Indication: HYPERTENSION
     Dosage: 50 mg, 2x/day
     Route: 048
     Dates: start: 2010
  7. RASILEZ [Concomitant]
     Indication: HYPERTENSION
     Dosage: 150 mg, 2x/day
     Route: 048
     Dates: start: 2010
  8. FLORINEF [Concomitant]
     Indication: ADRENAL INSUFFICIENCY
     Dosage: 0.1 mg, 2x/day
     Route: 048
     Dates: start: 2010
  9. GOSHAJINKIGAN [Concomitant]
     Indication: NEURALGIA
     Dosage: 1 DF, 3x/day
     Route: 048
     Dates: start: 20120312
  10. JUZENTAIHOTO [Concomitant]
     Indication: NEURALGIA
     Dosage: 1 DF, 3x/day
     Route: 048
     Dates: start: 20120312

REACTIONS (3)
  - Overdose [Recovered/Resolved]
  - Hypertension [Recovering/Resolving]
  - Drug level increased [Recovered/Resolved]
